FAERS Safety Report 4696638-7 (Version None)
Quarter: 2005Q2

REPORT INFORMATION
  Report Type: 
  Country: None (occurrence: None)
  Receive Date: 20050616
  Receipt Date: 20050404
  Transmission Date: 20051028
  Serious: No
  Sender: FDA-Public Use
  Company Number: BDI-007089

PATIENT
  Age: 61 Year
  Sex: Male

DRUGS (2)
  1. MULTIHANCE [Suspect]
     Indication: ANGIOGRAM PERIPHERAL
     Dosage: 40 ML ONCE IV
     Route: 042
     Dates: start: 20050325, end: 20050325
  2. MULTIHANCE [Suspect]
     Indication: INTERMITTENT CLAUDICATION
     Dosage: 40 ML ONCE IV
     Route: 042
     Dates: start: 20050325, end: 20050325

REACTIONS (3)
  - PRURITUS [None]
  - SNEEZING [None]
  - URTICARIA [None]
